FAERS Safety Report 9392734 (Version 1)
Quarter: 2013Q3

REPORT INFORMATION
  Report Type: Spontaneous
  Country: US (occurrence: None)
  Receive Date: 20130708
  Receipt Date: 20130708
  Transmission Date: 20140515
  Serious: No
  Sender: FDA-Public Use
  Company Number: None

PATIENT
  Age: 85 Year
  Sex: Female

DRUGS (1)
  1. TARCEVA [Suspect]
     Route: 048
     Dates: start: 20111220, end: 20130621

REACTIONS (1)
  - Abdominal pain [None]
